FAERS Safety Report 9876545 (Version 2)
Quarter: 2014Q1

REPORT INFORMATION
  Report Type: Other
  Country: US (occurrence: US)
  Receive Date: 20140206
  Receipt Date: 20140206
  Transmission Date: 20141002
  Serious: No
  Sender: FDA-Public Use
  Company Number: US-ACORDA-ACO_36233_2013

PATIENT
  Age: 64 Year
  Sex: Female

DRUGS (1)
  1. AMPYRA [Suspect]
     Indication: PRODUCT USED FOR UNKNOWN INDICATION
     Dosage: 10 MG, Q 12 HRS
     Route: 065
     Dates: start: 201305

REACTIONS (6)
  - Depression [Unknown]
  - Hypersomnia [Unknown]
  - Pruritus [Unknown]
  - Gait disturbance [Unknown]
  - Drug dose omission [Unknown]
  - Drug ineffective [Unknown]
